FAERS Safety Report 24417202 (Version 1)
Quarter: 2024Q4

REPORT INFORMATION
  Report Type: Spontaneous
  Country: US (occurrence: None)
  Receive Date: 20241009
  Receipt Date: 20241009
  Transmission Date: 20250115
  Serious: Yes (Death)
  Sender: Public
  Company Number: None

PATIENT
  Age: 73 Year
  Sex: Female

DRUGS (7)
  1. DYSPORT [Suspect]
     Active Substance: ABOBOTULINUMTOXINA
     Indication: Torticollis
     Dosage: OTHER FREQUENCY : EVERY 12 WEEKS;?
     Route: 030
     Dates: start: 20230807, end: 20241006
  2. ALEVE [Concomitant]
     Active Substance: NAPROXEN SODIUM
  3. BACLOFEN [Concomitant]
     Active Substance: BACLOFEN
  4. DIAZEPAM [Concomitant]
     Active Substance: DIAZEPAM
  5. GABAPENTIN [Concomitant]
     Active Substance: GABAPENTIN
  6. LISINOPRIL [Concomitant]
     Active Substance: LISINOPRIL
  7. SIMVASTATIN [Concomitant]
     Active Substance: SIMVASTATIN

REACTIONS (1)
  - Death [None]

NARRATIVE: CASE EVENT DATE: 20241006
